FAERS Safety Report 8561107-0 (Version None)
Quarter: 2012Q3

REPORT INFORMATION
  Report Type: 
  Country: None (occurrence: None)
  Receive Date: 20120802
  Receipt Date: 20120531
  Transmission Date: 20120928
  Serious: Yes (Hospitalization)
  Sender: FDA-Public Use
  Company Number: US-BRISTOL-MYERS SQUIBB COMPANY-16651515

PATIENT
  Age: 39 Year
  Sex: Male
  Weight: 77 kg

DRUGS (1)
  1. REYATAZ [Suspect]
     Indication: HIV INFECTION
     Dosage: INTERRUPTED IN MAY2012 AND RESTARTED A WEEK AGO

REACTIONS (5)
  - HEADACHE [None]
  - RASH GENERALISED [None]
  - DYSPNOEA [None]
  - SWELLING FACE [None]
  - WEIGHT INCREASED [None]
